FAERS Safety Report 4325080-3 (Version None)
Quarter: 2004Q1

REPORT INFORMATION
  Report Type: 
  Country: None (occurrence: None)
  Receive Date: 20040323
  Receipt Date: 20040311
  Transmission Date: 20041129
  Serious: Yes (Hospitalization)
  Sender: FDA-Public Use
  Company Number: 2004203332CZ

PATIENT
  Age: 55 Year
  Sex: Male
  Weight: 71 kg

DRUGS (4)
  1. GENOTROPIN [Suspect]
     Indication: HYPOPITUITARISM
     Dosage: 0.4 MG, QD
     Dates: start: 19981112, end: 20040129
  2. PRESTARIUM (PERINDOPRIL) [Concomitant]
  3. PLAVIX [Concomitant]
  4. DILATREND [Concomitant]

REACTIONS (1)
  - ACUTE MYOCARDIAL INFARCTION [None]
